FAERS Safety Report 16802100 (Version 1)
Quarter: 2019Q3

REPORT INFORMATION
  Report Type: Spontaneous
  Country: US (occurrence: US)
  Receive Date: 20190912
  Receipt Date: 20190912
  Transmission Date: 20191005
  Serious: No
  Sender: FDA-Public Use
  Company Number: US-LNK INTERNATIONAL, INC.-2074403

PATIENT
  Sex: Female

DRUGS (1)
  1. ASPIRIN 325MG FILM COATED WHTE TABLETS [Suspect]
     Active Substance: ASPIRIN

REACTIONS (4)
  - Hypotension [None]
  - Erythema [None]
  - Oral disorder [None]
  - Oral mucosal erythema [None]
